FAERS Safety Report 4608377-9 (Version None)
Quarter: 2005Q1

REPORT INFORMATION
  Report Type: 
  Country: None (occurrence: None)
  Receive Date: 20050311
  Receipt Date: 20050311
  Transmission Date: 20050727
  Serious: Yes (Other)
  Sender: FDA-Public Use
  Company Number: None

PATIENT
  Sex: Female
  Weight: 90.7194 kg

DRUGS (2)
  1. ZYPREXA [Suspect]
     Indication: SCHIZOAFFECTIVE DISORDER
     Dosage: 25 MG PO QPM
     Route: 048
     Dates: start: 20050201, end: 20050210
  2. ZYPREXA [Suspect]

REACTIONS (1)
  - HYPERLIPIDAEMIA [None]
